FAERS Safety Report 7010824-2 (Version None)
Quarter: 2010Q3

REPORT INFORMATION
  Report Type: 
  Country: None (occurrence: None)
  Receive Date: 20100923
  Receipt Date: 20100923
  Transmission Date: 20110219
  Serious: No
  Sender: FDA-Public Use
  Company Number: None

PATIENT
  Age: 39 Year
  Sex: Female
  Weight: 68.0396 kg

DRUGS (1)
  1. MIRAPEX [Suspect]
     Indication: RESTLESS LEGS SYNDROME
     Dosage: 4MG BEDTIME PO
     Route: 048
     Dates: start: 20070115, end: 20100922

REACTIONS (8)
  - ALCOHOL USE [None]
  - ANGER [None]
  - COMPULSIVE SHOPPING [None]
  - ECONOMIC PROBLEM [None]
  - EXCESSIVE EXERCISE [None]
  - HYPOPHAGIA [None]
  - INSOMNIA [None]
  - OBSESSIVE-COMPULSIVE DISORDER [None]
